FAERS Safety Report 11584003 (Version 1)
Quarter: 2015Q3

REPORT INFORMATION
  Report Type: Spontaneous
  Country: US (occurrence: None)
  Receive Date: 20150930
  Receipt Date: 20150930
  Transmission Date: 20151125
  Serious: Yes (Other)
  Sender: FDA-Public Use
  Company Number: None

PATIENT
  Age: 71 Year
  Sex: Male
  Weight: 88 kg

DRUGS (6)
  1. LURASIDONE [Suspect]
     Active Substance: LURASIDONE
     Indication: SCHIZOAFFECTIVE DISORDER
     Dosage: 1 PILL
     Route: 048
     Dates: start: 20121106, end: 20150421
  2. FENOFIBRIC ACID. [Concomitant]
     Active Substance: FENOFIBRIC ACID
  3. ATORVASTATIN [Concomitant]
     Active Substance: ATORVASTATIN
  4. LISINOPRIL. [Concomitant]
     Active Substance: LISINOPRIL
  5. METFORMIN [Concomitant]
     Active Substance: METFORMIN HYDROCHLORIDE
  6. ASPIRIN. [Concomitant]
     Active Substance: ASPIRIN

REACTIONS (7)
  - Hyperhidrosis [None]
  - Dental caries [None]
  - Action tremor [None]
  - Dry mouth [None]
  - Tachycardia [None]
  - Hypertension [None]
  - Parkinsonism [None]

NARRATIVE: CASE EVENT DATE: 20140904
